FAERS Safety Report 25381945 (Version 2)
Quarter: 2025Q3

REPORT INFORMATION
  Report Type: Spontaneous
  Country: GB (occurrence: GB)
  Receive Date: 20250531
  Receipt Date: 20250731
  Transmission Date: 20251021
  Serious: Yes (Death, Hospitalization, Other)
  Sender: CELLTRION
  Company Number: GB-CELLTRION INC.-2023GB025781

PATIENT

DRUGS (2)
  1. INFLIXIMAB [Suspect]
     Active Substance: INFLIXIMAB
     Indication: Rheumatoid arthritis
     Route: 058
     Dates: start: 20200610, end: 20220303
  2. ARAVA [Concomitant]
     Active Substance: LEFLUNOMIDE

REACTIONS (8)
  - Death [Fatal]
  - Pemphigoid [Not Recovered/Not Resolved]
  - Pulmonary cavitation [Unknown]
  - Rheumatoid arthritis [Not Recovered/Not Resolved]
  - Skin ulcer [Unknown]
  - Peripheral ischaemia [Unknown]
  - Vasculitis [Unknown]
  - Blister infected [Recovering/Resolving]

NARRATIVE: CASE EVENT DATE: 20220303
